FAERS Safety Report 8950905 (Version 2)
Quarter: 2012Q4

REPORT INFORMATION
  Report Type: Spontaneous
  Country: US (occurrence: None)
  Receive Date: 20121113
  Receipt Date: 20121116
  Transmission Date: 20130627
  Serious: Yes (Hospitalization)
  Sender: FDA-Public Use
  Company Number: 2011027836

PATIENT
  Age: 78 Year
  Sex: Female
  Weight: 92.53 kg

DRUGS (20)
  1. HIZENTRA [Suspect]
     Indication: CHRONIC INFLAMMATORY DEMYELINATING POLYRADICULONEUROPATHY
     Dosage: 20 mg 1x/week, 4 gm 20 ml vial: 100 ml in 6 sites in 2 hrs and 20 minutes, 20% concentration subuctaneous)
     Route: 058
     Dates: start: 20101116
  2. HIZENTRA [Suspect]
     Indication: CHRONIC INFLAMMATORY DEMYELINATING POLYRADICULONEUROPATHY
     Dosage: in 6 sites for 2 hours 10 minutes Subcutaneous
     Route: 058
     Dates: start: 20101116
  3. HIZENTRA [Suspect]
     Indication: CHRONIC INFLAMMATORY DEMYELINATING POLYRADICULONEUROPATHY
     Dosage: 4 gm 20 l vial subcutaneous
     Route: 058
     Dates: start: 20101116, end: 20110630
  4. HIZENTRA [Suspect]
     Indication: CHRONIC INFLAMMATORY DEMYELINATING POLYRADICULONEUROPATHY
     Dosage: 20 g 1x/week,  Oct-2012; 5-6 sites over 2 hours subcutaneous
     Route: 058
  5. HIZENTRA [Suspect]
     Indication: CHRONIC INFLAMMATORY DEMYELINATING POLYRADICULONEUROPATHY
     Dosage: 20 g 1x/week. Oct-2012; 5-6 sites over 2 hours Subcuaneous
     Route: 058
  6. HIZENTRA [Suspect]
     Indication: CHRONIC INFLAMMATORY DEMYELINATING POLYRADICULONEUROPATHY
     Dosage: 20 g 1x/week. Oct-2012; 5-6 sites over 2 hours Subcuaneous
     Route: 058
  7. FLEXERIL (CYCLOBENZAPRINE HYDROCHLORIDE) [Concomitant]
  8. FLONASE (FLUTICASONE PROPIONATE) [Concomitant]
  9. SENOKOT (SENNA ALEXANDRINA) [Concomitant]
  10. NEURTRONTIN (GABAPENTIN) [Concomitant]
  11. XANAX [Concomitant]
  12. OXYCONTIN (OXYCODONE HYDRCHLORIDE) [Concomitant]
  13. ZESTRIL (LISINOPRIL) [Concomitant]
  14. LASIX (FUROSEMIDE) [Concomitant]
  15. PREMARIN (ESTROGENS CONJUGATED) [Concomitant]
  16. ASPIRIN (ACETYLASICYLIC ACID) [Concomitant]
  17. ACETAMINOPHEN (PARACETAMOL),ACETYLSAL ACID,CAFFEINE CITRATE [Concomitant]
  18. DIPHENHYDRAMINE (DIPHENHYDRAMINE) [Concomitant]
  19. EPI-PEN (EPINEPHRINE HYDROCHLORIDE) [Concomitant]
  20. LMX (LIDOCAINE) [Concomitant]

REACTIONS (5)
  - Pruritus [None]
  - Rash [None]
  - Drug dose omission [None]
  - Pain [None]
  - Loss of consciousness [None]
